FAERS Safety Report 8008037-0 (Version None)
Quarter: 2011Q4

REPORT INFORMATION
  Report Type: 
  Country: None (occurrence: None)
  Receive Date: 20111227
  Receipt Date: 20111219
  Transmission Date: 20120403
  Serious: Yes (Other)
  Sender: FDA-Public Use
  Company Number: PHEH2011US07528

PATIENT
  Sex: Female

DRUGS (5)
  1. DIAZEPAM [Concomitant]
     Dosage: UNK UKN, PRN
  2. AMBIEN [Concomitant]
     Dosage: UNK UKN, PRN
  3. NORCO [Concomitant]
     Dosage: UNK UKN, PRN
  4. FLEXERIL [Concomitant]
     Dosage: UNK UKN, PRN
  5. GILENYA [Suspect]
     Indication: MULTIPLE SCLEROSIS
     Dosage: 0.5 MG, QD
     Route: 048
     Dates: start: 20111021

REACTIONS (14)
  - VOMITING [None]
  - NAUSEA [None]
  - HYPOTENSION [None]
  - BLOOD URINE PRESENT [None]
  - DEPRESSION [None]
  - BACK PAIN [None]
  - DIARRHOEA [None]
  - FATIGUE [None]
  - DECREASED APPETITE [None]
  - GAIT DISTURBANCE [None]
  - DIZZINESS [None]
  - DIVERTICULITIS [None]
  - ABDOMINAL PAIN UPPER [None]
  - VERTIGO [None]
